FAERS Safety Report 4270798-4 (Version None)
Quarter: 2004Q1

REPORT INFORMATION
  Report Type: 
  Country: None (occurrence: None)
  Receive Date: 20040113
  Receipt Date: 20031027
  Transmission Date: 20041129
  Serious: Yes (Death)
  Sender: FDA-Public Use
  Company Number: US-JNJFOC-20031005805

PATIENT
  Age: 54 Year
  Sex: Female

DRUGS (2)
  1. PROCRIT (ERYTHROPOIETIN) INJECTION [Suspect]
     Indication: ANAEMIA
     Dosage: 40000 IU, 1 IN 1 WEEK, UNKNOWN
     Dates: start: 19990101
  2. DOXIL [Suspect]
     Indication: BREAST CANCER METASTATIC
     Dosage: 65 MG, INTRAVENOUS (NOT OTHERWISE SPECIFIED)
     Route: 042
     Dates: start: 20031016

REACTIONS (5)
  - DEEP VEIN THROMBOSIS [None]
  - DISSEMINATED INTRAVASCULAR COAGULATION [None]
  - HEPATIC FAILURE [None]
  - PULMONARY EMBOLISM [None]
  - SEPSIS [None]
